FAERS Safety Report 4732485-5 (Version None)
Quarter: 2005Q3

REPORT INFORMATION
  Report Type: 
  Country: None (occurrence: None)
  Receive Date: 20050801
  Receipt Date: 20050801
  Transmission Date: 20060218
  Serious: Yes (Disabling)
  Sender: FDA-Public Use
  Company Number: None

PATIENT
  Age: 78 Year
  Sex: Male

DRUGS (1)
  1. RISPERIDONE [Suspect]
     Indication: SCHIZOPHRENIA, PARANOID TYPE
     Dosage: 3 MG PO Q DAY
     Route: 048
     Dates: start: 20050312, end: 20050328

REACTIONS (3)
  - DYSARTHRIA [None]
  - TARDIVE DYSKINESIA [None]
  - TONGUE DISORDER [None]
